FAERS Safety Report 8249046-6 (Version None)
Quarter: 2012Q2

REPORT INFORMATION
  Report Type: 
  Country: None (occurrence: None)
  Receive Date: 20120402
  Receipt Date: 20120323
  Transmission Date: 20120825
  Serious: Yes (Life-Threatening)
  Sender: FDA-Public Use
  Company Number: CO-BAYER-2012-029075

PATIENT
  Age: 44 Year
  Sex: Female
  Weight: 54 kg

DRUGS (2)
  1. AZATRIOPINA [Concomitant]
     Dosage: 50 MG, EVERY 3 DAYS
     Dates: start: 20090101
  2. BETASERON [Suspect]
     Dosage: UNK
     Dates: start: 20111101

REACTIONS (2)
  - ADMINISTRATION SITE REACTION [None]
  - PAIN [None]
